FAERS Safety Report 23041893 (Version 1)
Quarter: 2023Q4

REPORT INFORMATION
  Report Type: Spontaneous
  Country: FI (occurrence: FI)
  Receive Date: 20231007
  Receipt Date: 20231007
  Transmission Date: 20240109
  Serious: Yes (Hospitalization, Other)
  Sender: FDA-Public Use
  Company Number: FI-EMA-DD-20230830-7180173-102959

PATIENT
  Age: 58 Year
  Sex: Male

DRUGS (3)
  1. CAPECITABINE [Suspect]
     Active Substance: CAPECITABINE
     Indication: Rectal cancer
     Dosage: UNK, CYCLE (RECEIVED 1 CYCLE)
  2. OXALIPLATIN [Suspect]
     Active Substance: OXALIPLATIN
     Indication: Rectal cancer
     Dosage: UNK, CYCLE (RECEIVED 1 CYCLE; ALONG WITH CAPECITABINE AND OXALIPLATIN )
  3. GIMERACIL\OTERACIL\TEGAFUR [Suspect]
     Active Substance: GIMERACIL\OTERACIL POTASSIUM\TEGAFUR
     Indication: Rectal cancer
     Dosage: UNK, CYCLE (RECEIVED 1 CYCLE)

REACTIONS (5)
  - Cardiotoxicity [Recovered/Resolved with Sequelae]
  - Tachycardia [Recovered/Resolved]
  - Cardiac arrest [Recovered/Resolved]
  - Acute coronary syndrome [Recovered/Resolved]
  - Ventricular tachycardia [Recovered/Resolved]
